FAERS Safety Report 6112849-8 (Version None)
Quarter: 2009Q1

REPORT INFORMATION
  Report Type: 
  Country: None (occurrence: None)
  Receive Date: 20090312
  Receipt Date: 20090310
  Transmission Date: 20090719
  Serious: Yes (Other)
  Sender: FDA-Public Use
  Company Number: JP-ASTRAZENECA-2009AP01811

PATIENT
  Age: 37 Year
  Sex: Female

DRUGS (5)
  1. CRESTOR [Suspect]
     Route: 048
     Dates: start: 20061219, end: 20070831
  2. CRESTOR [Suspect]
     Route: 048
     Dates: start: 20070831, end: 20090302
  3. LOXONIN [Suspect]
     Route: 065
     Dates: end: 20090302
  4. TERNELIN [Suspect]
     Route: 065
     Dates: end: 20090302
  5. BRUFEN [Suspect]
     Route: 065
     Dates: start: 20090302

REACTIONS (2)
  - ABORTION SPONTANEOUS [None]
  - DRUG EXPOSURE DURING PREGNANCY [None]
